FAERS Safety Report 16174473 (Version 1)
Quarter: 2019Q2

REPORT INFORMATION
  Report Type: Report from Study
  Country: US (occurrence: US)
  Receive Date: 20190409
  Receipt Date: 20190409
  Transmission Date: 20190711
  Serious: Yes (Other)
  Sender: FDA-Public Use
  Company Number: US-UCBSA-2019014302

PATIENT
  Sex: Female

DRUGS (1)
  1. LEVETIRACETAM. [Suspect]
     Active Substance: LEVETIRACETAM
     Indication: PRODUCT USED FOR UNKNOWN INDICATION
     Dosage: 2000 MG, 2X/DAY (BID)

REACTIONS (6)
  - Seizure [Unknown]
  - Intentional product misuse [Unknown]
  - Anger [Unknown]
  - Overdose [Unknown]
  - Affective disorder [Unknown]
  - Sleep disorder [Unknown]
